FAERS Safety Report 12870504 (Version 3)
Quarter: 2017Q1

REPORT INFORMATION
  Report Type: Spontaneous
  Country: CH (occurrence: CH)
  Receive Date: 20161021
  Receipt Date: 20170208
  Transmission Date: 20170428
  Serious: Yes (Hospitalization)
  Sender: FDA-Public Use
  Company Number: CH-PFIZER INC-2016479694

PATIENT
  Age: 86 Year
  Sex: Female
  Weight: 70 kg

DRUGS (19)
  1. NOVALGIN [Interacting]
     Active Substance: METAMIZOLE SODIUM
     Dosage: UNK, AS NEEDED
     Dates: end: 20160913
  2. SEROQUEL [Suspect]
     Active Substance: QUETIAPINE FUMARATE
     Dosage: 25 MG, 2X/DAY (1-1-0)
     Dates: start: 201609, end: 20161016
  3. ACIDUM FOLICUM [Concomitant]
     Active Substance: FOLIC ACID
     Dosage: 5 MG, 1X/DAY (1-0-0)
     Dates: start: 2012
  4. PRADAXA [Concomitant]
     Active Substance: DABIGATRAN ETEXILATE MESYLATE
     Dosage: 110 MG, 2X/DAY (1-0-1)
     Route: 048
     Dates: start: 2012, end: 20160913
  5. SORTIS [Interacting]
     Active Substance: ATORVASTATIN
     Dosage: 40 MG, 1X/DAY
     Route: 048
     Dates: start: 2012, end: 20160922
  6. ATACAND [Concomitant]
     Active Substance: CANDESARTAN CILEXETIL
     Dosage: 8 MG, 2X/DAY (1-0-1)
     Dates: start: 20161101
  7. METHOTREXATE SODIUM. [Interacting]
     Active Substance: METHOTREXATE SODIUM
     Dosage: 5 MG, WEEKLY (2 TABLETS ON WEDNESDAYS)
     Route: 048
     Dates: start: 2000, end: 20160907
  8. CRESTOR [Suspect]
     Active Substance: ROSUVASTATIN CALCIUM
     Dosage: UNK
     Dates: start: 20160923
  9. VALTREX [Suspect]
     Active Substance: VALACYCLOVIR HYDROCHLORIDE
     Indication: HERPES SIMPLEX
     Dosage: 500 MG, 2X/DAY (1-0-1)
     Dates: start: 20160922, end: 20161017
  10. DUPHALAC [Concomitant]
     Active Substance: LACTULOSE
     Dosage: UNK, AS NEEDED
  11. TEMESTA [Suspect]
     Active Substance: LORAZEPAM
     Dosage: UNK, AS NEEDED
     Dates: end: 20160913
  12. METHOTREXATE SODIUM. [Interacting]
     Active Substance: METHOTREXATE SODIUM
     Dosage: 10 MG WEEKLY
     Route: 048
     Dates: start: 20160928
  13. PASPERTIN /00041902/ [Concomitant]
     Active Substance: METOCLOPRAMIDE HYDROCHLORIDE
     Dosage: UNK, AS NEEDED
  14. MOVICOL [Concomitant]
     Active Substance: POLYETHYLENE GLYCOL 3350\POTASSIUM CHLORIDE\SODIUM BICARBONATE\SODIUM CHLORIDE
     Dosage: UNK, AS NEEDED
  15. TOREM /01036501/ [Interacting]
     Active Substance: TORSEMIDE
     Dosage: 5 MG, 2X/DAY (1-1-0)
  16. TRAMADOL. [Concomitant]
     Active Substance: TRAMADOL
     Dosage: 50 MG, AS NEEDED
  17. PREDNISON [Concomitant]
     Active Substance: PREDNISONE
     Dosage: 20 MG, DAILY (2 TABLETS)
     Dates: start: 20160913, end: 20160913
  18. ATACAND [Concomitant]
     Active Substance: CANDESARTAN CILEXETIL
     Dosage: 8 MG, 2X/DAY (1-0-1)
     Dates: start: 2012, end: 20160926
  19. PRADAXA [Concomitant]
     Active Substance: DABIGATRAN ETEXILATE MESYLATE
     Dosage: 110 MG, 2X/DAY (1-0-1)
     Route: 048
     Dates: start: 20160926

REACTIONS (7)
  - Thrombocytopenia [Recovered/Resolved]
  - Thrombocytopenia [Recovered/Resolved]
  - Anaemia [Recovering/Resolving]
  - Leukopenia [Recovered/Resolved]
  - Genital herpes simplex [Unknown]
  - Drug interaction [Recovered/Resolved]
  - Leukopenia [Recovered/Resolved]

NARRATIVE: CASE EVENT DATE: 2016
